FAERS Safety Report 5970342-7 (Version None)
Quarter: 2008Q4

REPORT INFORMATION
  Report Type: 
  Country: None (occurrence: None)
  Receive Date: 20081126
  Receipt Date: 20081020
  Transmission Date: 20090506
  Serious: No
  Sender: FDA-Public Use
  Company Number: US-ABBOTT-08P-163-0482958-00

PATIENT
  Sex: Female

DRUGS (9)
  1. SIMCOR [Suspect]
     Indication: BLOOD CHOLESTEROL INCREASED
     Dosage: 500/20 MG QHS
     Dates: start: 20080930
  2. SIMCOR [Suspect]
     Indication: BLOOD TRIGLYCERIDES INCREASED
  3. HYDROCHLOROTHIAZIDE [Concomitant]
     Indication: DRUG USE FOR UNKNOWN INDICATION
     Dosage: QAM
     Route: 048
  4. CASOTROL (VITAMIN D) [Concomitant]
     Indication: DRUG USE FOR UNKNOWN INDICATION
     Route: 048
  5. BYSTOLIC [Concomitant]
     Indication: PALPITATIONS
     Route: 048
  6. CLIDINIUM-CHLORDIAZEPOXIVE [Concomitant]
     Indication: IRRITABLE BOWEL SYNDROME
  7. MEFENAMIC ACID [Concomitant]
     Indication: DRUG USE FOR UNKNOWN INDICATION
     Dosage: AT HS
  8. OCVITE LEUTEN VIT FOR EYE [Concomitant]
     Indication: DRUG USE FOR UNKNOWN INDICATION
  9. GLUCOSAMINE + CHONDROITIN WITH MSM [Concomitant]
     Indication: ARTHRALGIA

REACTIONS (4)
  - ABNORMAL DREAMS [None]
  - CHILLS [None]
  - EYE PRURITUS [None]
  - VISION BLURRED [None]
